FAERS Safety Report 9789758 (Version 1)
Quarter: 2013Q4

REPORT INFORMATION
  Report Type: Spontaneous
  Country: US (occurrence: US)
  Receive Date: 20131231
  Receipt Date: 20131231
  Transmission Date: 20140711
  Serious: No
  Sender: FDA-Public Use
  Company Number: US-PFIZER INC-2013372478

PATIENT
  Age: 62 Year
  Sex: Female
  Weight: 132 kg

DRUGS (4)
  1. NEURONTIN [Suspect]
     Indication: NEURALGIA
     Dosage: UNK
     Dates: start: 200805
  2. NEURONTIN [Suspect]
     Dosage: 300 MG, 5X/DAY
  3. EFFEXOR-XR [Concomitant]
     Indication: DEPRESSION
     Dosage: 150 MG, 2X/DAY
  4. RITALIN [Concomitant]
     Indication: ATTENTION DEFICIT/HYPERACTIVITY DISORDER
     Dosage: UNK

REACTIONS (1)
  - Therapeutic response unexpected [Unknown]
